FAERS Safety Report 6007671-7 (Version None)
Quarter: 2008Q4

REPORT INFORMATION
  Report Type: 
  Country: None (occurrence: None)
  Receive Date: 20081217
  Receipt Date: 20080402
  Transmission Date: 20090506
  Serious: No
  Sender: FDA-Public Use
  Company Number: US-ASTRAZENECA-2008UW06602

PATIENT
  Age: 70 Year
  Sex: Female

DRUGS (4)
  1. CRESTOR [Suspect]
     Indication: HYPERCHOLESTEROLAEMIA
     Route: 048
     Dates: end: 20050101
  2. ZYRTEC [Concomitant]
  3. CALCIUM WITH VITAMIN D [Concomitant]
  4. ASPIRIN [Concomitant]

REACTIONS (3)
  - FATIGUE [None]
  - INFLUENZA LIKE ILLNESS [None]
  - MUSCLE SPASMS [None]
